FAERS Safety Report 9731624 (Version 2)
Quarter: 2013Q4

REPORT INFORMATION
  Report Type: Report from Study
  Country: US (occurrence: US)
  Receive Date: 20131204
  Receipt Date: 20131210
  Transmission Date: 20140711
  Serious: Yes (Hospitalization)
  Sender: FDA-Public Use
  Company Number: US-PFIZER INC-2013340812

PATIENT
  Age: 50 Year
  Sex: Female
  Weight: 82 kg

DRUGS (33)
  1. BLINDED CELECOXIB [Suspect]
     Indication: OSTEOARTHRITIS
     Dosage: TID
     Route: 048
     Dates: start: 20100812, end: 20120406
  2. BLINDED IBUPROFEN [Suspect]
     Indication: OSTEOARTHRITIS
     Dosage: TID
     Route: 048
     Dates: start: 20100812, end: 20120406
  3. BLINDED IBUPROFEN [Suspect]
     Indication: OSTEOARTHRITIS
     Dosage: TID
     Route: 048
     Dates: start: 20100812, end: 20120406
  4. BLINDED IBUPROFEN [Suspect]
     Indication: OSTEOARTHRITIS
     Dosage: TID
     Route: 048
     Dates: start: 20100812, end: 20120406
  5. BLINDED NAPROXEN [Suspect]
     Indication: OSTEOARTHRITIS
     Dosage: TID
     Route: 048
     Dates: start: 20100812, end: 20120406
  6. BLINDED NAPROXEN [Suspect]
     Indication: OSTEOARTHRITIS
     Dosage: TID
     Route: 048
     Dates: start: 20100812, end: 20120406
  7. BLINDED NAPROXEN [Suspect]
     Indication: OSTEOARTHRITIS
     Dosage: TID
     Route: 048
     Dates: start: 20100812, end: 20120406
  8. BLINDED PLACEBO [Suspect]
     Indication: OSTEOARTHRITIS
     Dosage: TID
     Route: 048
     Dates: start: 20100812, end: 20120406
  9. BLINDED CELECOXIB [Suspect]
     Indication: RHEUMATOID ARTHRITIS
  10. BLINDED IBUPROFEN [Suspect]
     Indication: RHEUMATOID ARTHRITIS
  11. BLINDED IBUPROFEN [Suspect]
     Indication: RHEUMATOID ARTHRITIS
  12. BLINDED IBUPROFEN [Suspect]
     Indication: RHEUMATOID ARTHRITIS
  13. BLINDED NAPROXEN [Suspect]
     Indication: RHEUMATOID ARTHRITIS
  14. BLINDED NAPROXEN [Suspect]
     Indication: RHEUMATOID ARTHRITIS
  15. BLINDED NAPROXEN [Suspect]
     Indication: RHEUMATOID ARTHRITIS
  16. BLINDED PLACEBO [Suspect]
     Indication: RHEUMATOID ARTHRITIS
  17. METHOTREXATE SODIUM [Suspect]
     Indication: RHEUMATOID ARTHRITIS
     Dosage: 15 MG, Q SUNDAY
     Route: 048
     Dates: start: 20090924, end: 20130721
  18. NEXIUM [Concomitant]
     Indication: PROPHYLAXIS
     Dosage: 40 MG, 1X/DAY
     Route: 048
     Dates: start: 20100812, end: 20120406
  19. FOLIC ACID [Concomitant]
     Indication: SUPPLEMENTATION THERAPY
     Dosage: 1 MG, 1X/DAY
     Route: 048
     Dates: start: 20090903, end: 20130726
  20. (LEVEMIR) DETEMIR [Concomitant]
     Indication: TYPE 2 DIABETES MELLITUS
     Dosage: 60 IU, AM AND PM
     Route: 058
     Dates: start: 20110822, end: 20130726
  21. ABILIFY [Concomitant]
     Indication: BIPOLAR DISORDER
     Dosage: 20 MG, 1X/DAY
     Route: 048
     Dates: start: 200911
  22. METFORMIN [Concomitant]
     Indication: TYPE 2 DIABETES MELLITUS
     Dosage: 500 MG, 2X/DAY
     Route: 048
     Dates: start: 20120105, end: 20130726
  23. TRICOR [Concomitant]
     Indication: DYSLIPIDAEMIA
     Dosage: 145 MG, 1X/DAY
     Route: 048
     Dates: start: 20110811
  24. LEXAPRO [Concomitant]
     Indication: ANXIETY
     Dosage: 20 MG, QD
     Route: 048
     Dates: start: 200911
  25. LEXAPRO [Concomitant]
     Indication: DEPRESSION
  26. WELLBUTRIN XL [Concomitant]
     Indication: DEPRESSION
     Dosage: 150 MG, 2X/DAY
     Route: 048
     Dates: start: 200911
  27. ENALAPRIL [Concomitant]
     Indication: HYPERTENSION
     Dosage: 5 MG, QD
     Route: 048
     Dates: start: 20110828, end: 20130726
  28. OMEGA-3-ACID ETHYL ESTER [Concomitant]
     Indication: HYPERTRIGLYCERIDAEMIA
     Dosage: 1000 MG, 2X/DAY
     Route: 048
     Dates: start: 200911, end: 20130726
  29. TOPROL XL [Concomitant]
     Indication: PALPITATIONS
     Dosage: 50 MG, QD
     Route: 048
     Dates: start: 20120424, end: 20130726
  30. VOLTAREN [Concomitant]
     Indication: PAIN
     Dosage: 1 %, 2X/DAY
     Route: 061
     Dates: start: 20121022, end: 20130726
  31. PRENATE PLUS [Concomitant]
     Indication: FATIGUE
     Dosage: 1 TABLET, QD
     Route: 048
     Dates: start: 20120904, end: 20130726
  32. ESTRADIOL [Concomitant]
     Indication: ARTIFICIAL MENOPAUSE
     Dosage: 1 MG, QD
     Route: 048
     Dates: start: 20130709, end: 20130726
  33. PRILOSEC [Concomitant]
     Indication: GASTROOESOPHAGEAL REFLUX DISEASE
     Dosage: 40 MG, QD
     Route: 048
     Dates: start: 20130709, end: 20130726

REACTIONS (2)
  - Systemic inflammatory response syndrome [Recovered/Resolved]
  - Pneumonia legionella [Recovered/Resolved]
